FAERS Safety Report 19751839 (Version 1)
Quarter: 2021Q3

REPORT INFORMATION
  Report Type: Spontaneous
  Country: QA (occurrence: QA)
  Receive Date: 20210826
  Receipt Date: 20210826
  Transmission Date: 20211014
  Serious: Yes (Hospitalization, Other)
  Sender: FDA-Public Use
  Company Number: QA-GILEAD-2021-0545480

PATIENT
  Age: 54 Year
  Sex: Female

DRUGS (9)
  1. CONVALESCENT PLASMA COVID?19 [Concomitant]
     Active Substance: COVID-19 CONVALESCENT PLASMA
  2. FAVIPIRAVIR [Suspect]
     Active Substance: FAVIPIRAVIR
     Indication: COVID-19
     Route: 048
  3. AMPICILLIN AND SULBACTAM [Concomitant]
     Active Substance: AMPICILLIN SODIUM\SULBACTAM SODIUM
  4. AZITHROMYCIN ANHYDROUS. [Concomitant]
     Active Substance: AZITHROMYCIN ANHYDROUS
  5. VEKLURY [Suspect]
     Active Substance: REMDESIVIR
     Dosage: 100 MG, ONCE
     Route: 042
  6. VEKLURY [Suspect]
     Active Substance: REMDESIVIR
     Indication: COVID-19
     Dosage: 200 MG, ONCE
     Route: 042
  7. AMOXICILLIN;CLAVULANIC ACID [Concomitant]
     Active Substance: AMOXICILLIN\CLAVULANIC ACID
  8. ANAKINRA [Concomitant]
     Active Substance: ANAKINRA
  9. OXYGEN. [Concomitant]
     Active Substance: OXYGEN

REACTIONS (1)
  - Bradycardia [Recovered/Resolved]
